FAERS Safety Report 20431523 (Version 1)
Quarter: 2022Q1

REPORT INFORMATION
  Report Type: Spontaneous
  Country: JP (occurrence: None)
  Receive Date: 20220204
  Receipt Date: 20220204
  Transmission Date: 20220423
  Serious: Yes (Death)
  Sender: FDA-Public Use
  Company Number: 2021A854656

PATIENT
  Age: 85 Year
  Sex: Female

DRUGS (2)
  1. LYNPARZA [Suspect]
     Active Substance: OLAPARIB
     Indication: Breast cancer recurrent
     Route: 048
     Dates: start: 20180803
  2. LYNPARZA [Suspect]
     Active Substance: OLAPARIB
     Indication: Breast cancer recurrent
     Route: 048
     Dates: end: 20180928

REACTIONS (3)
  - Death [Fatal]
  - Malaise [Not Recovered/Not Resolved]
  - Anaemia [Unknown]

NARRATIVE: CASE EVENT DATE: 20180914
